FAERS Safety Report 8079965-5 (Version None)
Quarter: 2012Q1

REPORT INFORMATION
  Report Type: 
  Country: None (occurrence: None)
  Receive Date: 20120128
  Receipt Date: 20110802
  Transmission Date: 20120608
  Serious: No
  Sender: FDA-Public Use
  Company Number: US-ABBOTT-11P-163-0843625-00

PATIENT
  Age: 55 Year
  Sex: Female

DRUGS (17)
  1. ACID OTC [Concomitant]
     Indication: GASTROOESOPHAGEAL REFLUX DISEASE
  2. SEROQUEL [Concomitant]
     Indication: DEPRESSION
  3. VENTOLIN [Concomitant]
     Indication: RESPIRATORY DISORDER
     Route: 055
  4. HUMIRA [Suspect]
     Indication: CROHN'S DISEASE
  5. DOXEPIN [Concomitant]
     Indication: PRODUCT USED FOR UNKNOWN INDICATION
     Dosage: AT BEDTIME
  6. HYDROXYZINE [Concomitant]
     Indication: VOMITING
  7. LOVASTATIN [Concomitant]
     Indication: BLOOD CHOLESTEROL INCREASED
  8. METFFORMIN HYDROCHLORIDE [Concomitant]
     Indication: DIABETES MELLITUS
  9. CYCLOBENZAPRINE [Concomitant]
     Indication: PAIN
  10. OXYCONTIN [Concomitant]
     Indication: PAIN
  11. BUSPIRONE HCL [Concomitant]
     Indication: ANXIETY
  12. HYDROXYZINE [Concomitant]
     Indication: NAUSEA
  13. HYDROCHLOROTHIAZIDE [Concomitant]
     Indication: HYPERTENSION
  14. LEXAPRO [Concomitant]
     Indication: DEPRESSION
  15. DICYCLOMINE [Concomitant]
     Indication: ABDOMINAL PAIN UPPER
  16. RANITIDINE [Concomitant]
     Indication: GASTROOESOPHAGEAL REFLUX DISEASE
  17. VENLAFAXINE HCL [Concomitant]
     Indication: ANXIETY

REACTIONS (2)
  - PAIN [None]
  - SLEEP APNOEA SYNDROME [None]
